FAERS Safety Report 8119132-X (Version None)
Quarter: 2012Q1

REPORT INFORMATION
  Report Type: 
  Country: None (occurrence: None)
  Receive Date: 20120207
  Receipt Date: 20120207
  Transmission Date: 20120608
  Serious: No
  Sender: FDA-Public Use
  Company Number: None

PATIENT
  Age: 43 Year
  Sex: Male
  Weight: 96.161 kg

DRUGS (2)
  1. LEXAPRO [Concomitant]
     Indication: DEPRESSION
     Dosage: 20MG
     Route: 048
     Dates: start: 20090323, end: 20110103
  2. PROZAC [Suspect]
     Indication: DEPRESSION
     Dosage: 10MG
     Route: 048
     Dates: start: 20071010, end: 20090323

REACTIONS (2)
  - QUALITY OF LIFE DECREASED [None]
  - AKATHISIA [None]
